FAERS Safety Report 17241425 (Version 1)
Quarter: 2020Q1

REPORT INFORMATION
  Report Type: Report from Study
  Country: US (occurrence: US)
  Receive Date: 20200107
  Receipt Date: 20200107
  Transmission Date: 20200409
  Serious: Yes (Other)
  Sender: FDA-Public Use
  Company Number: US-ROCHE-2511132

PATIENT

DRUGS (2)
  1. TRASTUZUMAB. [Suspect]
     Active Substance: TRASTUZUMAB
     Indication: HER-2 POSITIVE BREAST CANCER
     Route: 041
  2. PERTUZUMAB. [Suspect]
     Active Substance: PERTUZUMAB
     Indication: HER-2 POSITIVE BREAST CANCER
     Dosage: ADMINISTERED IV 420 MG ON THE SAME DAY AS TRASTUZUMAB PER THE MANUFACTURERS GUIDELINES
     Route: 042

REACTIONS (11)
  - Oedema peripheral [Unknown]
  - Fibrosis [Unknown]
  - Breast pain [Unknown]
  - Hot flush [Unknown]
  - Mobility decreased [Unknown]
  - Cardiomyopathy [Unknown]
  - Dermatitis [Unknown]
  - Depression [Unknown]
  - Pericardial effusion [Recovered/Resolved]
  - Cardiotoxicity [Unknown]
  - Fatigue [Unknown]
